FAERS Safety Report 4622807-8 (Version None)
Quarter: 2005Q1

REPORT INFORMATION
  Report Type: 
  Country: None (occurrence: None)
  Receive Date: 20050329
  Receipt Date: 20050329
  Transmission Date: 20050727
  Serious: Yes (Death, Other)
  Sender: FDA-Public Use
  Company Number: None

PATIENT
  Age: 17 Year
  Sex: Male
  Weight: 71.2147 kg

DRUGS (2)
  1. ACCUTANE [Suspect]
     Indication: ACNE
     Dosage: 1 A DAY
     Dates: start: 20050201, end: 20050228
  2. ACCUTANE [Suspect]
     Indication: ACNE
     Dosage: 1 A DAY
     Dates: start: 20050301, end: 20050316

REACTIONS (1)
  - COMPLETED SUICIDE [None]
